FAERS Safety Report 13745323 (Version 3)
Quarter: 2017Q3

REPORT INFORMATION
  Report Type: Report from Study
  Country: JP (occurrence: JP)
  Receive Date: 20170712
  Receipt Date: 20170911
  Transmission Date: 20171127
  Serious: Yes (Hospitalization, Other)
  Sender: FDA-Public Use
  Company Number: JP-ASTELLAS-2017JP012952

PATIENT
  Age: 25 Year
  Sex: Female
  Weight: 48 kg

DRUGS (4)
  1. RITODRINE HYDROCHLORIDE [Concomitant]
     Active Substance: RITODRINE HYDROCHLORIDE
     Indication: THREATENED LABOUR
     Dosage: UNK UNK, UNKNOWN FREQ.
     Route: 065
     Dates: start: 20100609
  2. TACROLIMUS. [Suspect]
     Active Substance: TACROLIMUS
     Indication: IMMUNOSUPPRESSANT DRUG THERAPY
     Route: 048
     Dates: start: 2005
  3. PREDNISOLONE. [Suspect]
     Active Substance: PREDNISOLONE
     Indication: PLATELET COUNT DECREASED
     Route: 048
     Dates: start: 20100615, end: 20100716
  4. URSO [Concomitant]
     Active Substance: URSODIOL
     Indication: PRODUCT USED FOR UNKNOWN INDICATION
     Route: 048
     Dates: start: 2011

REACTIONS (6)
  - Platelet count decreased [Not Recovered/Not Resolved]
  - Maternal exposure during pregnancy [Unknown]
  - Threatened labour [Recovering/Resolving]
  - Premature rupture of membranes [Recovering/Resolving]
  - Puerperal pyrexia [Recovering/Resolving]
  - Premature delivery [Unknown]

NARRATIVE: CASE EVENT DATE: 2009
